FAERS Safety Report 8921128 (Version 1)
Quarter: 2012Q4

REPORT INFORMATION
  Report Type: 
  Country: FR (occurrence: FR)
  Receive Date: 20121123
  Receipt Date: 20121123
  Transmission Date: 20130627
  Serious: Yes (Hospitalization, Other)
  Sender: FDA-Public Use
  Company Number: FR-ABBOTT-12P-056-0980077-00

PATIENT
  Sex: Female
  Weight: 70 kg

DRUGS (2)
  1. HUMIRA PRE-FILLED SYRINGE [Suspect]
     Indication: INFLAMMATORY BOWEL DISEASE
  2. HUMIRA PRE-FILLED SYRINGE [Suspect]
     Indication: CROHN^S DISEASE

REACTIONS (6)
  - Dermatitis bullous [Recovered/Resolved]
  - Psoriasis [Unknown]
  - Pustular psoriasis [Recovered/Resolved]
  - Dermal cyst [Unknown]
  - Parapsoriasis [Unknown]
  - Eczema infected [Unknown]
